FAERS Safety Report 6585346-3 (Version None)
Quarter: 2010Q1

REPORT INFORMATION
  Report Type: 
  Country: None (occurrence: None)
  Receive Date: 20100217
  Receipt Date: 20100209
  Transmission Date: 20100710
  Serious: Yes (Hospitalization)
  Sender: FDA-Public Use
  Company Number: US-JNJFOC-20100205402

PATIENT
  Sex: Female
  Weight: 61.69 kg

DRUGS (5)
  1. DURAGESIC-100 [Suspect]
     Indication: BACK PAIN
     Route: 062
  2. DURAGESIC-100 [Suspect]
     Route: 062
  3. ATIVAN [Suspect]
     Indication: NEUROPATHY PERIPHERAL
     Route: 048
  4. ULTRAM ER [Concomitant]
     Indication: PAIN
     Route: 048
  5. PEPCID [Concomitant]
     Indication: GASTROOESOPHAGEAL REFLUX DISEASE
     Route: 048

REACTIONS (4)
  - HOSPITALISATION [None]
  - MALAISE [None]
  - VOMITING [None]
  - WITHDRAWAL SYNDROME [None]
